FAERS Safety Report 6143387-4 (Version None)
Quarter: 2009Q2

REPORT INFORMATION
  Report Type: 
  Country: None (occurrence: None)
  Receive Date: 20090403
  Receipt Date: 20090324
  Transmission Date: 20091009
  Serious: Yes (Hospitalization, Other)
  Sender: FDA-Public Use
  Company Number: CA-PFIZER INC-2009162458

PATIENT

DRUGS (3)
  1. CHAMPIX [Suspect]
     Dosage: 1 MG, 2X/DAY
     Route: 048
     Dates: start: 20081223, end: 20090123
  2. ADVIL [Concomitant]
     Indication: HEADACHE
     Dosage: UNK
  3. CENTRUM [Concomitant]
     Dosage: UNK

REACTIONS (15)
  - ABNORMAL DREAMS [None]
  - AMNESIA [None]
  - ANXIETY [None]
  - CRYING [None]
  - EMOTIONAL DISORDER [None]
  - HALLUCINATION [None]
  - ILL-DEFINED DISORDER [None]
  - MEMORY IMPAIRMENT [None]
  - OBSESSIVE-COMPULSIVE DISORDER [None]
  - PAROSMIA [None]
  - PSYCHOTIC DISORDER [None]
  - RASH [None]
  - SUICIDAL IDEATION [None]
  - THERMAL BURN [None]
  - TREMOR [None]
